FAERS Safety Report 4503618-0 (Version None)
Quarter: 2004Q4

REPORT INFORMATION
  Report Type: 
  Country: None (occurrence: None)
  Receive Date: 20041115
  Receipt Date: 20041115
  Transmission Date: 20050328
  Serious: Yes (Other)
  Sender: FDA-Public Use
  Company Number: URSO-2004-025

PATIENT
  Age: 48 Year
  Sex: Male

DRUGS (2)
  1. URSO [Suspect]
     Indication: LIVER DISORDER
     Dates: start: 20001201
  2. URSO [Suspect]
     Indication: LIVER DISORDER
     Dates: start: 20021201

REACTIONS (6)
  - ALANINE AMINOTRANSFERASE INCREASED [None]
  - ASPARTATE AMINOTRANSFERASE INCREASED [None]
  - BLOOD BILIRUBIN INCREASED [None]
  - CONDITION AGGRAVATED [None]
  - GAMMA-GLUTAMYLTRANSFERASE INCREASED [None]
  - LIVER DISORDER [None]
